FAERS Safety Report 5892271-X (Version None)
Quarter: 2008Q3

REPORT INFORMATION
  Report Type: 
  Country: None (occurrence: None)
  Receive Date: 20080919
  Receipt Date: 20080909
  Transmission Date: 20090109
  Serious: Yes (Disabling)
  Sender: FDA-Public Use
  Company Number: 238015J08USA

PATIENT
  Age: 39 Year
  Sex: Male
  Weight: 81.6475 kg

DRUGS (4)
  1. REBIF [Suspect]
     Indication: MULTIPLE SCLEROSIS
     Dosage: 44 MCG, 3 IN 1 WEEKS, SUBCUTANEOUS
     Route: 058
     Dates: start: 20071023
  2. TYLENOL (COTYLENOL) [Concomitant]
  3. PROVIGIL [Concomitant]
  4. PROZAC [Concomitant]

REACTIONS (2)
  - BLINDNESS [None]
  - MULTIPLE SCLEROSIS RELAPSE [None]
